FAERS Safety Report 6436944-9 (Version None)
Quarter: 2009Q4

REPORT INFORMATION
  Report Type: 
  Country: None (occurrence: None)
  Receive Date: 20091111
  Receipt Date: 20091030
  Transmission Date: 20100525
  Serious: Yes (Other)
  Sender: FDA-Public Use
  Company Number: US-JNJCH-2009029031

PATIENT
  Age: 30 Year
  Sex: Female
  Weight: 68 kg

DRUGS (1)
  1. LISTERINE TOOTH DEFENSE [Suspect]
     Indication: DENTAL CARE
     Dosage: TEXT:10 ML ONCE
     Route: 048
     Dates: start: 20091026, end: 20091026

REACTIONS (5)
  - APPLICATION SITE PAIN [None]
  - GINGIVAL PAIN [None]
  - GINGIVITIS [None]
  - GLOSSODYNIA [None]
  - MEDICATION ERROR [None]
